FAERS Safety Report 6644016-3 (Version None)
Quarter: 2010Q1

REPORT INFORMATION
  Report Type: 
  Country: None (occurrence: None)
  Receive Date: 20100317
  Receipt Date: 20100308
  Transmission Date: 20100710
  Serious: Yes (Other)
  Sender: FDA-Public Use
  Company Number: JHP201000102

PATIENT

DRUGS (2)
  1. EPINEPHRINE [Suspect]
     Indication: HAEMOSTASIS
     Dosage: DILUTE 1:10,000 INJECTED IN 0.5-2ML ALIQUOTS INTO AND AROUND THE BLEEDER AT THE SPHINCTEROTOMY SITE,
  2. THERMOTHERAPY (ARGON PLASMA COAGULATION) () [Suspect]
     Indication: HAEMOSTASIS

REACTIONS (1)
  - PANCREATITIS [None]
